FAERS Safety Report 7749556-1 (Version None)
Quarter: 2011Q3

REPORT INFORMATION
  Report Type: 
  Country: None (occurrence: None)
  Receive Date: 20110914
  Receipt Date: 20110908
  Transmission Date: 20111222
  Serious: Yes (Hospitalization)
  Sender: FDA-Public Use
  Company Number: JP-B.I. PHARMACEUTICALS,INC./RIDGEFIELD-2011-BP-18951NB

PATIENT
  Age: 65 Year
  Sex: Female
  Weight: 60 kg

DRUGS (8)
  1. UNISIA [Concomitant]
     Indication: HYPERTENSION
     Dosage: 1 DF
     Route: 048
     Dates: start: 20101201
  2. DILTIAZEM [Concomitant]
     Dosage: 90 MG
     Route: 048
     Dates: start: 20091112
  3. MAGNESIUM OXIDE [Concomitant]
     Indication: CONSTIPATION
     Dosage: 330 MG
     Route: 048
  4. LIVALO [Concomitant]
     Indication: HYPERLIPIDAEMIA
     Dosage: 1 G
     Route: 048
     Dates: start: 20100129
  5. OMEPRAZOLE [Concomitant]
     Dosage: 10 MG
     Route: 048
     Dates: start: 20080901
  6. PRADAXA [Suspect]
     Indication: ATRIAL FIBRILLATION
     Dosage: 225 MG
     Route: 048
     Dates: start: 20110418, end: 20110729
  7. NITOROL R [Concomitant]
     Dosage: 40 MG
     Route: 048
     Dates: start: 20080701
  8. ALOSENN [Concomitant]
     Indication: CONSTIPATION
     Dosage: 1 G
     Route: 048
     Dates: start: 20110307

REACTIONS (3)
  - GASTROINTESTINAL HAEMORRHAGE [None]
  - CONSTIPATION [None]
  - ANAEMIA [None]
